FAERS Safety Report 8116639-6 (Version None)
Quarter: 2012Q1

REPORT INFORMATION
  Report Type: 
  Country: None (occurrence: None)
  Receive Date: 20120206
  Receipt Date: 20120126
  Transmission Date: 20120608
  Serious: Yes (Other)
  Sender: FDA-Public Use
  Company Number: PHEH2012US002370

PATIENT
  Age: 46 Year
  Sex: Male

DRUGS (1)
  1. AFINITOR [Suspect]
     Indication: RENAL CELL CARCINOMA
     Dosage: 10 MG, DAILY
     Route: 048
     Dates: start: 20111014

REACTIONS (5)
  - FATIGUE [None]
  - HYPERGLYCAEMIA [None]
  - IRON DEFICIENCY ANAEMIA [None]
  - BLOOD CHOLESTEROL INCREASED [None]
  - LIPIDS INCREASED [None]
